FAERS Safety Report 15160133 (Version 1)
Quarter: 2018Q3

REPORT INFORMATION
  Report Type: Spontaneous
  Country: US (occurrence: US)
  Receive Date: 20180718
  Receipt Date: 20180718
  Transmission Date: 20181010
  Serious: Yes (Hospitalization, Other)
  Sender: FDA-Public Use
  Company Number: US-INDIVIOR LIMITED-INDV-112421-2018

PATIENT
  Age: 19 Month
  Sex: Male

DRUGS (1)
  1. SUBUTEX [Suspect]
     Active Substance: BUPRENORPHINE HYDROCHLORIDE
     Dosage: UNK
     Route: 048

REACTIONS (3)
  - Adverse event [Recovered/Resolved]
  - Failure of child resistant mechanism for pharmaceutical product [None]
  - Accidental exposure to product by child [Recovered/Resolved]
